FAERS Safety Report 8552697-2 (Version None)
Quarter: 2012Q3

REPORT INFORMATION
  Report Type: 
  Country: None (occurrence: None)
  Receive Date: 20120731
  Receipt Date: 20120726
  Transmission Date: 20120928
  Serious: No
  Sender: FDA-Public Use
  Company Number: US-PFIZER INC-2012182829

PATIENT
  Sex: Female

DRUGS (3)
  1. ZOLOFT [Suspect]
     Dosage: 50 MG, UNK
  2. ZOLOFT [Suspect]
     Dosage: 100 MG, UNK
  3. ZOLOFT [Suspect]
     Dosage: 25 MG, UNK
     Dates: end: 20120701

REACTIONS (3)
  - DISTURBANCE IN ATTENTION [None]
  - INFLUENZA LIKE ILLNESS [None]
  - LETHARGY [None]
